FAERS Safety Report 4377106-9 (Version None)
Quarter: 2004Q2

REPORT INFORMATION
  Report Type: 
  Country: None (occurrence: None)
  Receive Date: 20040608
  Receipt Date: 20040524
  Transmission Date: 20050107
  Serious: Yes (Hospitalization)
  Sender: FDA-Public Use
  Company Number: B01200300232

PATIENT
  Age: 74 Year
  Sex: Male

DRUGS (6)
  1. (OXALIPLATIN) - SOLUTION - 85 MG/M2 [Suspect]
     Indication: COLORECTAL CANCER METASTATIC
     Dosage: 85 MG/M2 Q3W, INTRAVENOUS NOS
     Route: 042
     Dates: start: 20030114, end: 20030114
  2. (IRINOTECAN) - SOLUTION - 200 MG/M2 [Suspect]
     Dosage: 200 MG/M2 Q3W,  INTRAVENOUS NOS
     Route: 042
     Dates: start: 20030114, end: 20030114
  3. TAMSULOSIN [Concomitant]
  4. MODOPAR [Concomitant]
  5. AMIODARONE HCL [Concomitant]
  6. THYROXINE (LEVOTHYROXINE) [Concomitant]

REACTIONS (6)
  - BLOOD SODIUM DECREASED [None]
  - DIARRHOEA [None]
  - HAEMOGLOBIN DECREASED [None]
  - LEUKOPENIA [None]
  - NEUTROPENIC SEPSIS [None]
  - PLATELET COUNT DECREASED [None]
